FAERS Safety Report 7204496-1 (Version None)
Quarter: 2010Q4

REPORT INFORMATION
  Report Type: 
  Country: None (occurrence: None)
  Receive Date: 20101230
  Receipt Date: 20101223
  Transmission Date: 20110411
  Serious: Yes (Hospitalization)
  Sender: FDA-Public Use
  Company Number: NL-JNJFOC-20101207835

PATIENT
  Sex: Male
  Weight: 72 kg

DRUGS (12)
  1. INFLIXIMAB, RECOMBINANT [Suspect]
     Indication: RHEUMATOID ARTHRITIS
     Route: 042
  2. METHOTREXATE [Suspect]
     Indication: RHEUMATOID ARTHRITIS
  3. FOLIC ACID [Concomitant]
  4. LANOXIN [Concomitant]
     Indication: ATRIAL FIBRILLATION
  5. RETINOL [Concomitant]
  6. BISOPROLOL [Concomitant]
     Indication: ATRIAL FIBRILLATION
  7. HYDROXYCARBAMIDE [Concomitant]
     Indication: ANAEMIA
  8. SIMVASTATIN [Concomitant]
     Indication: PROPHYLAXIS
  9. ARTHROTEC [Concomitant]
     Indication: PAIN
  10. NEXIUM [Concomitant]
     Indication: GASTROINTESTINAL DISORDER THERAPY
  11. FUROSEMIDE [Concomitant]
     Indication: OEDEMA
  12. ACENOCOUMAROL [Concomitant]
     Indication: CEREBROVASCULAR ACCIDENT PROPHYLAXIS

REACTIONS (2)
  - ATRIAL FIBRILLATION [None]
  - DYSPNOEA [None]
